FAERS Safety Report 4522816-3 (Version None)
Quarter: 2004Q4

REPORT INFORMATION
  Report Type: 
  Country: None (occurrence: None)
  Receive Date: 20041207
  Receipt Date: 20041201
  Transmission Date: 20050328
  Serious: Yes (Hospitalization)
  Sender: FDA-Public Use
  Company Number: SEWYE255903DEC04

PATIENT
  Age: 30 Year
  Sex: Female

DRUGS (1)
  1. EFFEXOR [Suspect]
     Indication: DEPRESSION
     Dosage: 75 MG 1X PER 1 DAY ORAL; STARTED FOUR YEARS AGO; SEE IMAGE
     Route: 048

REACTIONS (8)
  - BLOOD PRESSURE INCREASED [None]
  - CAESAREAN SECTION [None]
  - DRUG EXPOSURE DURING PREGNANCY [None]
  - EYE OEDEMA [None]
  - HEADACHE [None]
  - OEDEMA [None]
  - SINUS TACHYCARDIA [None]
  - VISUAL DISTURBANCE [None]
